FAERS Safety Report 8436086-7 (Version None)
Quarter: 2012Q2

REPORT INFORMATION
  Report Type: 
  Country: None (occurrence: None)
  Receive Date: 20120607
  Receipt Date: 20120607
  Transmission Date: 20120825
  Serious: Yes (Other)
  Sender: FDA-Public Use
  Company Number: None

PATIENT
  Age: 45 Year
  Sex: Female
  Weight: 61.2356 kg

DRUGS (2)
  1. CETIRIZINE HCL [Suspect]
     Indication: SEASONAL ALLERGY
     Dosage: 10 MG DAILY PO
     Route: 048
     Dates: start: 20070501, end: 20120504
  2. ZYRTEC [Suspect]
     Indication: SEASONAL ALLERGY
     Dosage: 10 MG DAILY PO
     Route: 048
     Dates: start: 20070501, end: 20120504

REACTIONS (3)
  - RASH [None]
  - URTICARIA [None]
  - PRURITUS [None]
